FAERS Safety Report 13881872 (Version 1)
Quarter: 2017Q3

REPORT INFORMATION
  Report Type: Spontaneous
  Country: US (occurrence: US)
  Receive Date: 20170818
  Receipt Date: 20170818
  Transmission Date: 20171127
  Serious: Yes (Other)
  Sender: FDA-Public Use
  Company Number: US-009507513-1708USA006628

PATIENT
  Sex: Male
  Weight: 94.33 kg

DRUGS (15)
  1. LYRICA [Suspect]
     Active Substance: PREGABALIN
     Dosage: 75 MG, TWICE A DAY
     Route: 048
     Dates: start: 201706
  2. BORTEZOMIB (+) CYCLOPHOSPHAMIDE (+) DEXAMETHASONE [Suspect]
     Active Substance: CYCLOPHOSPHAMIDE\BORTEZOMIB\DEXAMETHASONE
     Indication: CHEMOTHERAPY
     Dosage: UNK
     Dates: start: 2015
  3. CYANOCOBALAMIN. [Concomitant]
     Active Substance: CYANOCOBALAMIN
     Indication: VITAMIN SUPPLEMENTATION
     Dosage: 1000 MG, ONCE A MONTH
  4. ACYCLOVIR. [Concomitant]
     Active Substance: ACYCLOVIR
     Indication: ANTIVIRAL TREATMENT
     Dosage: 400 MG, TWICE A DAY
     Route: 048
     Dates: start: 2015
  5. HYDROCHLOROTHIAZIDE. [Concomitant]
     Active Substance: HYDROCHLOROTHIAZIDE
     Indication: BLOOD PRESSURE ABNORMAL
     Dosage: 25 MG, ONCE A DAY
     Route: 048
     Dates: start: 201407
  6. LYRICA [Suspect]
     Active Substance: PREGABALIN
     Indication: NEUROPATHY PERIPHERAL
     Dosage: 50 MG, TWICE A DAY
     Route: 048
     Dates: start: 201705, end: 201706
  7. GABAPENTIN. [Suspect]
     Active Substance: GABAPENTIN
     Indication: NEUROPATHY PERIPHERAL
     Dosage: UNK UNK, TID
     Dates: start: 2016
  8. VELCADE [Suspect]
     Active Substance: BORTEZOMIB
     Indication: CHEMOTHERAPY
     Dosage: A WEEKLY SHOT IN THE STOMACH
     Dates: start: 2015
  9. VELCADE [Suspect]
     Active Substance: BORTEZOMIB
     Dosage: SHOT EVERY TWO WEEKS
     Dates: start: 201612, end: 201707
  10. ACYCLOVIR. [Concomitant]
     Active Substance: ACYCLOVIR
     Indication: IMMUNODEFICIENCY
  11. DEXAMETHASONE. [Suspect]
     Active Substance: DEXAMETHASONE
     Dosage: 20 MG, EVERY OTHER MONDAY
     Route: 048
  12. FENOFIBRATE. [Concomitant]
     Active Substance: FENOFIBRATE
     Indication: BLOOD TRIGLYCERIDES INCREASED
     Dosage: 160 MG, ONCE A DAY
     Route: 048
     Dates: start: 201507
  13. ZANTAC [Concomitant]
     Active Substance: RANITIDINE HYDROCHLORIDE
     Indication: GENERAL SYMPTOM
     Dosage: 150 MG, ONCE A DAY
     Route: 048
     Dates: start: 2016
  14. PRILOSEC [Concomitant]
     Active Substance: OMEPRAZOLE MAGNESIUM
     Dosage: 2 DF, QD
     Dates: end: 2016
  15. SPIRONOLACTONE. [Concomitant]
     Active Substance: SPIRONOLACTONE
     Indication: DIURETIC THERAPY
     Dosage: 25 MG, ONCE A DAY
     Route: 048
     Dates: start: 201407

REACTIONS (4)
  - POEMS syndrome [Not Recovered/Not Resolved]
  - Impaired work ability [None]
  - Memory impairment [Not Recovered/Not Resolved]
  - Bone marrow transplant [None]

NARRATIVE: CASE EVENT DATE: 2015
